FAERS Safety Report 10537486 (Version 1)
Quarter: 2014Q4

REPORT INFORMATION
  Report Type: Spontaneous
  Country: US (occurrence: None)
  Receive Date: 20141022
  Receipt Date: 20141022
  Transmission Date: 20150529
  Serious: Yes (Disabling)
  Sender: FDA-Public Use
  Company Number: None

PATIENT
  Age: 32 Year
  Sex: Female
  Weight: 79.38 kg

DRUGS (1)
  1. BACTRIM [Suspect]
     Active Substance: SULFAMETHOXAZOLE\TRIMETHOPRIM
     Indication: URINARY TRACT INFECTION
     Dosage: 1 PILL TWICE DIALY TAKEN BY MOUTH

REACTIONS (11)
  - Pyrexia [None]
  - Chills [None]
  - Migraine [None]
  - Tremor [None]
  - Diplopia [None]
  - Dizziness [None]
  - Confusional state [None]
  - Asthenia [None]
  - Heart rate increased [None]
  - Hyperhidrosis [None]
  - Thirst [None]

NARRATIVE: CASE EVENT DATE: 20120516
